FAERS Safety Report 16822300 (Version 1)
Quarter: 2019Q3

REPORT INFORMATION
  Report Type: Spontaneous
  Country: US (occurrence: US)
  Receive Date: 20190918
  Receipt Date: 20190918
  Transmission Date: 20191005
  Serious: No
  Sender: FDA-Public Use
  Company Number: US-PFIZER INC-2019399616

PATIENT
  Age: 48 Year
  Sex: Male
  Weight: 86.18 kg

DRUGS (2)
  1. SILDENAFIL CITRATE. [Suspect]
     Active Substance: SILDENAFIL CITRATE
     Indication: ERECTILE DYSFUNCTION
     Dosage: 25 MG,
  2. SILDENAFIL CITRATE. [Suspect]
     Active Substance: SILDENAFIL CITRATE
     Dosage: 50 MG, 5 TABLETS, 30-45 MINUTES PRIOR TO SEXUAL INTERCOURSE
     Route: 048

REACTIONS (2)
  - Drug ineffective [Unknown]
  - Prescribed overdose [Unknown]
